FAERS Safety Report 6376791-X (Version None)
Quarter: 2009Q3

REPORT INFORMATION
  Report Type: 
  Country: None (occurrence: None)
  Receive Date: 20090925
  Receipt Date: 20090916
  Transmission Date: 20100115
  Serious: Yes (Hospitalization)
  Sender: FDA-Public Use
  Company Number: BR-ASTRAZENECA-2009SE13846

PATIENT
  Age: 61 Year
  Sex: Male
  Weight: 76 kg

DRUGS (2)
  1. ATACAND HCT [Suspect]
     Indication: HYPERTENSION
     Dosage: 16/12.5 MG
     Route: 048
     Dates: start: 20090815
  2. ANLO [Concomitant]
     Indication: HYPERTENSION
     Route: 048
     Dates: start: 20090815

REACTIONS (15)
  - BACK PAIN [None]
  - BLOOD CHOLESTEROL INCREASED [None]
  - BLOOD GLUCOSE INCREASED [None]
  - DEPRESSED LEVEL OF CONSCIOUSNESS [None]
  - DIZZINESS [None]
  - EAR CONGESTION [None]
  - EYE DISORDER [None]
  - FALL [None]
  - HYPERHIDROSIS [None]
  - HYPERTENSION [None]
  - INCREASED APPETITE [None]
  - PALLOR [None]
  - SPEECH DISORDER [None]
  - VISUAL IMPAIRMENT [None]
  - WEIGHT DECREASED [None]
